FAERS Safety Report 5155416-5 (Version None)
Quarter: 2006Q4

REPORT INFORMATION
  Report Type: 
  Country: None (occurrence: None)
  Receive Date: 20061114
  Receipt Date: 20061101
  Transmission Date: 20070319
  Serious: Yes (Hospitalization, Other)
  Sender: FDA-Public Use
  Company Number: 2006136797

PATIENT
  Age: 73 Year
  Sex: Female
  Weight: 58.0604 kg

DRUGS (7)
  1. NEURONTIN [Suspect]
     Indication: PAIN
     Dosage: 900 MG (300 MG, 3 IN 1 D)
     Dates: start: 20020101
  2. LYRICA [Suspect]
     Indication: PAIN
     Dosage: 150 MG (75 MG, 2 IN 1 D)
     Dates: start: 20060801
  3. ALL OTHER THERAPEUTIC PRODUCTS (ALL OTHE THERAPEUTIC PRODUCTS) [Suspect]
     Indication: SURGERY
     Dates: start: 20050901, end: 20050901
  4. LEXAPRO [Concomitant]
  5. VALSARTAN [Concomitant]
  6. ALL OTHER THERAPEUTIC PRODUCTS (ALL OTHER THERAPEUTIC PRODUCTS) [Concomitant]
  7. PERCOCET [Concomitant]

REACTIONS (15)
  - ANXIETY [None]
  - CALCINOSIS [None]
  - COGNITIVE DISORDER [None]
  - DYSSTASIA [None]
  - MEDICAL DEVICE COMPLICATION [None]
  - MEMORY IMPAIRMENT [None]
  - NERVE INJURY [None]
  - PAIN IN EXTREMITY [None]
  - PARAESTHESIA [None]
  - RESTLESS LEGS SYNDROME [None]
  - SENSORY DISTURBANCE [None]
  - SOMNOLENCE [None]
  - SPINAL CORD DISORDER [None]
  - SPINAL DISORDER [None]
  - SPONDYLITIS [None]
